FAERS Safety Report 9696233 (Version 1)
Quarter: 2013Q4

REPORT INFORMATION
  Report Type: Spontaneous
  Country: GB (occurrence: None)
  Receive Date: 20131115
  Receipt Date: 20131115
  Transmission Date: 20140711
  Serious: Yes (Hospitalization)
  Sender: FDA-Public Use
  Company Number: 2008191

PATIENT
  Age: 30 Year
  Sex: Male

DRUGS (4)
  1. (PACLITAXEL) [Suspect]
     Indication: GERM CELL CANCER
     Dates: start: 20050131, end: 20050221
  2. (ETOPOSIDE) [Suspect]
     Indication: GERM CELL CANCER
     Dosage: 385 MG, MILLIGRAM(S) , 1TOTAL , UNKNOWN
     Dates: start: 20050131, end: 20050419
  3. CISPLATIN [Suspect]
     Indication: GERM CELL CANCER
     Dosage: 765 MG MILLIGRAM(S) , 1 TOTAL, UNKNOWN
     Dates: start: 20050131, end: 20050419
  4. BLEOMYCIN [Suspect]
     Indication: GERM CELL CANCER
     Dosage: 360 MG MILLIGRAM (S), 1 TOTAL, UNKNOWN

REACTIONS (7)
  - Neutropenic sepsis [None]
  - Lower respiratory tract infection [None]
  - Vena cava thrombosis [None]
  - Malaise [None]
  - Vomiting [None]
  - Nausea [None]
  - Stomatitis [None]
